FAERS Safety Report 8880641 (Version 1)
Quarter: 2012Q4

REPORT INFORMATION
  Report Type: 
  Country: GB (occurrence: GB)
  Receive Date: 20121101
  Receipt Date: 20121101
  Transmission Date: 20130627
  Serious: Yes (Death, Hospitalization)
  Sender: FDA-Public Use
  Company Number: GB-ACCORD-015058

PATIENT
  Age: 38 Year
  Sex: Female

DRUGS (16)
  1. ZAPONEX [Suspect]
     Indication: SCHIZOPHRENIA
     Dosage: started clozapine on 01-Jul-2001 and then swtiched to Zaponex 800 mg daily
     Route: 048
     Dates: start: 20081209
  2. TAZOCIN [Concomitant]
     Dosage: UNK
  3. SIMVASTATIN [Suspect]
     Indication: DRUG USE FOR UNKNOWN INDICATION
     Dosage: 40 mg, UNK, nocte
  4. LEVOTHYROXINE [Concomitant]
     Dosage: 25 ug, in the morning
  5. OMEPRAZOLE [Concomitant]
     Dosage: 200 mg, daily
  6. DIHYDROCODEINE [Concomitant]
     Dosage: 30 mg, every 4-6 hours
  7. FUROSEMIDE [Concomitant]
     Dosage: 20 mg, in the morning
     Dates: start: 20120730
  8. DIAZEPAM [Concomitant]
     Dosage: 5 mg, bid
  9. METFORMIN [Concomitant]
     Dosage: 500 mg, tid
  10. DEPO-PROVERA [Concomitant]
     Dosage: UNK
  11. SERTRALINE [Concomitant]
     Dosage: 100 mg, daily
  12. APIDRA [Concomitant]
     Dosage: UNK
  13. PARACETAMOL [Concomitant]
     Dosage: UNK
  14. LANTUS [Concomitant]
     Dosage: UNK
  15. CHLORPHENAMINE [Concomitant]
     Dosage: 4 mg, every 4-6 hours
  16. LYMECYCLINE [Concomitant]
     Dosage: 408 mg, daily

REACTIONS (17)
  - Lymphoma [Unknown]
  - Electrocardiogram QT prolonged [Recovered/Resolved]
  - Endocarditis [Unknown]
  - Condition aggravated [Not Recovered/Not Resolved]
  - Malaise [Not Recovered/Not Resolved]
  - Mass [Not Recovered/Not Resolved]
  - Death [Fatal]
  - Furuncle [Unknown]
  - Neutrophil count increased [Unknown]
  - White blood cell count increased [Unknown]
  - Emotional distress [Not Recovered/Not Resolved]
  - Joint swelling [Not Recovered/Not Resolved]
  - Arthralgia [Not Recovered/Not Resolved]
  - Dyspnoea [Not Recovered/Not Resolved]
  - Inflammatory marker increased [Unknown]
  - Platelet count increased [Unknown]
  - Infection [Unknown]
